FAERS Safety Report 23057311 (Version 2)
Quarter: 2023Q4

REPORT INFORMATION
  Report Type: Report from Study
  Country: US (occurrence: US)
  Receive Date: 20231012
  Receipt Date: 20231222
  Transmission Date: 20240110
  Serious: No
  Sender: FDA-Public Use
  Company Number: US-002147023-NVSC2023US218307

PATIENT
  Sex: Female

DRUGS (1)
  1. KESIMPTA [Suspect]
     Active Substance: OFATUMUMAB
     Indication: Multiple sclerosis
     Route: 065

REACTIONS (6)
  - Muscle tightness [Unknown]
  - Muscle disorder [Unknown]
  - Vomiting [Unknown]
  - Pain [Unknown]
  - Feeling abnormal [Unknown]
  - Chills [Unknown]
